FAERS Safety Report 4276595-8 (Version None)
Quarter: 2004Q1

REPORT INFORMATION
  Report Type: 
  Country: None (occurrence: None)
  Receive Date: 20040120
  Receipt Date: 20040112
  Transmission Date: 20041129
  Serious: Yes (Other)
  Sender: FDA-Public Use
  Company Number: A0492412A

PATIENT
  Age: 9 Year
  Sex: Female

DRUGS (2)
  1. SENSODYNE EXTRA WHITENING TOOTHPASTE (SENSODYNE EXTRA WHITENING) [Suspect]
     Dosage: DENTAL
     Route: 004
     Dates: start: 20040109, end: 20040109
  2. INSULIN LISPRO [Concomitant]

REACTIONS (5)
  - CONVULSION [None]
  - EYE DISORDER [None]
  - FATIGUE [None]
  - MYDRIASIS [None]
  - URINARY INCONTINENCE [None]
